FAERS Safety Report 16270491 (Version 4)
Quarter: 2022Q4

REPORT INFORMATION
  Report Type: Report from Study
  Country: CA (occurrence: CA)
  Receive Date: 20190503
  Receipt Date: 20221028
  Transmission Date: 20230113
  Serious: Yes (Other)
  Sender: FDA-Public Use
  Company Number: CA-KOREA IPSEN PHARMA-2019-03944

PATIENT
  Age: 65 Year
  Sex: Female

DRUGS (10)
  1. LANREOTIDE ACETATE [Suspect]
     Active Substance: LANREOTIDE ACETATE
     Indication: Carcinoid syndrome
     Dosage: 120 MG EVERY 28 DAYS
     Route: 058
     Dates: start: 20190307
  2. SYNTHROID [Concomitant]
     Active Substance: LEVOTHYROXINE SODIUM
  3. WARFARIN [Concomitant]
     Active Substance: WARFARIN
  4. ESTRACE [Concomitant]
     Active Substance: ESTRADIOL
  5. DILTIAZEM [Concomitant]
     Active Substance: DILTIAZEM
  6. ZANTAC [Concomitant]
     Active Substance: RANITIDINE HYDROCHLORIDE
  7. BUTYLSCOPOLAMINE BROMIDE [Concomitant]
     Active Substance: BUTYLSCOPOLAMINE BROMIDE
  8. GRAVOL [Concomitant]
     Active Substance: DIMENHYDRINATE
  9. TYLENOL [Concomitant]
     Active Substance: ACETAMINOPHEN
  10. LASIX [Concomitant]
     Active Substance: FUROSEMIDE

REACTIONS (19)
  - Haematochezia [Not Recovered/Not Resolved]
  - Carcinoid crisis [Recovering/Resolving]
  - Cataract [Unknown]
  - Diarrhoea [Unknown]
  - Abdominal pain upper [Recovering/Resolving]
  - Nausea [Not Recovered/Not Resolved]
  - Constipation [Recovering/Resolving]
  - Blood thyroid stimulating hormone decreased [Unknown]
  - Decreased appetite [Not Recovered/Not Resolved]
  - Weight decreased [Unknown]
  - Faeces pale [Unknown]
  - Injection site bruising [Unknown]
  - Myalgia [Recovering/Resolving]
  - Memory impairment [Recovered/Resolved]
  - International normalised ratio increased [Unknown]
  - International normalised ratio decreased [Unknown]
  - Dysphonia [Not Recovered/Not Resolved]
  - Tooth abscess [Recovering/Resolving]
  - Therapeutic response shortened [Unknown]

NARRATIVE: CASE EVENT DATE: 20190307
